FAERS Safety Report 6351404-1 (Version None)
Quarter: 2009Q3

REPORT INFORMATION
  Report Type: 
  Country: None (occurrence: None)
  Receive Date: 20090912
  Receipt Date: 20090622
  Transmission Date: 20100115
  Serious: No
  Sender: FDA-Public Use
  Company Number: US-ABBOTT-07P-163-0415475-00

PATIENT
  Sex: Female
  Weight: 64.014 kg

DRUGS (7)
  1. HUMIRA [Suspect]
     Indication: CROHN'S DISEASE
     Dosage: LOADING DOSE
     Route: 058
     Dates: start: 20070808, end: 20070822
  2. HUMIRA [Suspect]
     Route: 058
     Dates: start: 20070822
  3. METOPROLOL SUCCINATE [Concomitant]
     Indication: BLOOD PRESSURE
     Route: 048
  4. LOTREL [Concomitant]
     Indication: BLOOD PRESSURE
     Route: 048
  5. ESOMEPRAZOLE MAGNESIUM [Concomitant]
     Indication: GASTROOESOPHAGEAL REFLUX PROPHYLAXIS
     Route: 048
  6. PREDNISONE [Concomitant]
     Indication: CROHN'S DISEASE
     Dosage: 20MG-1/2 TABLET AND THEN ONE 5MG TABLET ONCE A DAY
     Route: 048
  7. MERCAPTOPURINE [Concomitant]
     Indication: CROHN'S DISEASE
     Route: 048

REACTIONS (2)
  - DRUG DELIVERY SYSTEM MALFUNCTION [None]
  - INCORRECT DOSE ADMINISTERED [None]
